FAERS Safety Report 6101766-5 (Version None)
Quarter: 2009Q1

REPORT INFORMATION
  Report Type: 
  Country: None (occurrence: None)
  Receive Date: 20090227
  Receipt Date: 20080414
  Transmission Date: 20090719
  Serious: Yes (Other)
  Sender: FDA-Public Use
  Company Number: 246179

PATIENT
  Age: 15 Year
  Sex: Male
  Weight: 37.2 kg

DRUGS (2)
  1. NUTROPIN AQ [Suspect]
     Indication: GROWTH HORMONE DEFICIENCY
     Dosage: 1.5 MG, QD, SUBCUTANEOUS : 0.75 MG, SINGLE
     Route: 058
     Dates: start: 20070215
  2. NUTROPIN AQ [Suspect]
     Indication: GROWTH HORMONE DEFICIENCY
     Dosage: 1.5 MG, QD, SUBCUTANEOUS : 0.75 MG, SINGLE
     Route: 058
     Dates: start: 20071001

REACTIONS (1)
  - INTRACRANIAL PRESSURE INCREASED [None]
